FAERS Safety Report 5873691-6 (Version None)
Quarter: 2008Q3

REPORT INFORMATION
  Report Type: 
  Country: None (occurrence: None)
  Receive Date: 20080908
  Receipt Date: 20080903
  Transmission Date: 20090109
  Serious: Yes (Disabling)
  Sender: FDA-Public Use
  Company Number: B0534900A

PATIENT
  Age: 68 Year
  Sex: Male
  Weight: 75 kg

DRUGS (1)
  1. ARRANON [Suspect]
     Dosage: 1500MGM2 ALTERNATE DAYS
     Route: 042
     Dates: start: 20080116, end: 20080120

REACTIONS (1)
  - MEMORY IMPAIRMENT [None]
